FAERS Safety Report 20086041 (Version 1)
Quarter: 2021Q4

REPORT INFORMATION
  Report Type: Spontaneous
  Country: US (occurrence: None)
  Receive Date: 20211117
  Receipt Date: 20211117
  Transmission Date: 20220304
  Serious: No
  Sender: FDA-Public Use
  Company Number: None

PATIENT

DRUGS (2)
  1. STERILE WATER FOR INJECTION [Suspect]
     Active Substance: WATER
  2. ANTICOAGULANT CITRATE PHOSPHATE DEXTROSE (CPD) [Suspect]
     Active Substance: CITRIC ACID MONOHYDRATE\DEXTROSE\SODIUM CITRATE\SODIUM PHOSPHATE, MONOBASIC

REACTIONS (5)
  - Product label confusion [None]
  - Packaging design issue [None]
  - Physical product label issue [None]
  - Product barcode issue [None]
  - Product packaging confusion [None]
